FAERS Safety Report 7715012-X (Version None)
Quarter: 2011Q3

REPORT INFORMATION
  Report Type: 
  Country: None (occurrence: None)
  Receive Date: 20110829
  Receipt Date: 20110725
  Transmission Date: 20111222
  Serious: No
  Sender: FDA-Public Use
  Company Number: US-ASTRAZENECA-2011SE44596

PATIENT
  Age: 77 Year
  Sex: Female

DRUGS (3)
  1. VIMOVO [Suspect]
     Indication: ARTHRITIS
     Dosage: 500 MG / 20 MG DAILY
     Route: 048
     Dates: start: 20110714, end: 20110718
  2. BLOOD PRESSURE MEDICATION [Concomitant]
     Indication: HYPERTENSION
  3. DIGESTIVE MEDICATION [Concomitant]
     Indication: ABDOMINAL DISCOMFORT

REACTIONS (5)
  - BLOOD PRESSURE INCREASED [None]
  - ABDOMINAL DISCOMFORT [None]
  - NASAL DISCOMFORT [None]
  - OROPHARYNGEAL PAIN [None]
  - CHEST PAIN [None]
